FAERS Safety Report 11815467 (Version 1)
Quarter: 2015Q4

REPORT INFORMATION
  Report Type: Spontaneous
  Country: DE (occurrence: DE)
  Receive Date: 20151209
  Receipt Date: 20151209
  Transmission Date: 20160305
  Serious: Yes (Other)
  Sender: FDA-Public Use
  Company Number: DE-MYLANLABS-2015M1043978

PATIENT

DRUGS (2)
  1. ETOMIDATE. [Suspect]
     Active Substance: ETOMIDATE
     Indication: GENERAL ANAESTHESIA
     Dosage: 0.2-0.3 MG/KG
     Route: 065
  2. SUCCINYLCHOLINE CHLORIDE. [Concomitant]
     Active Substance: SUCCINYLCHOLINE CHLORIDE
     Indication: HYPOTONIA
     Route: 065

REACTIONS (1)
  - Delirium [Unknown]
